FAERS Safety Report 5564264-3 (Version None)
Quarter: 2007Q4

REPORT INFORMATION
  Report Type: 
  Country: None (occurrence: None)
  Receive Date: 20071212
  Receipt Date: 20071130
  Transmission Date: 20080405
  Serious: Yes (Hospitalization, Other)
  Sender: FDA-Public Use
  Company Number: US021885

PATIENT
  Age: 87 Year
  Sex: Female

DRUGS (3)
  1. TRISENOX [Suspect]
     Indication: ACUTE PROMYELOCYTIC LEUKAEMIA
     Dosage: 6.21 MG QD INTRAVENOUS DRIP
     Route: 041
     Dates: start: 20070115, end: 20070128
  2. TRISENOX [Suspect]
     Indication: ACUTE PROMYELOCYTIC LEUKAEMIA
     Dosage: 6.21 MG QD INTRAVENOUS DRIP
     Route: 041
     Dates: start: 20070130, end: 20070209
  3. SULFAMETHOXAZOLE AND TRIMETHOPRIM [Concomitant]

REACTIONS (2)
  - NEUTROPENIA [None]
  - VENTRICULAR EXTRASYSTOLES [None]
